FAERS Safety Report 9330071 (Version 1)
Quarter: 2013Q2

REPORT INFORMATION
  Report Type: Spontaneous
  Country: CA (occurrence: CA)
  Receive Date: 20130604
  Receipt Date: 20130604
  Transmission Date: 20140414
  Serious: Yes (Other)
  Sender: FDA-Public Use
  Company Number: CA-TEVA-409975USA

PATIENT
  Age: 19 Year
  Sex: Female

DRUGS (4)
  1. CIPROFLOXACIN [Suspect]
     Route: 065
  2. SULFATRIM [Suspect]
     Route: 065
  3. IBUPROFEN [Concomitant]
  4. TYLENOL WITH CODEINE NO. 3-TAB [Concomitant]

REACTIONS (5)
  - Urinary tract infection [Unknown]
  - Condition aggravated [Unknown]
  - Drug ineffective [Unknown]
  - Pruritus generalised [Unknown]
  - Skin disorder [Unknown]
